FAERS Safety Report 22061141 (Version 1)
Quarter: 2023Q1

REPORT INFORMATION
  Report Type: Spontaneous
  Country: US (occurrence: US)
  Receive Date: 20230303
  Receipt Date: 20230303
  Transmission Date: 20230417
  Serious: No
  Sender: FDA-Public Use
  Company Number: US-BAUSCHBL-2023BNL001643

PATIENT
  Age: 68 Year
  Sex: Female

DRUGS (1)
  1. ALAWAY PRESERVATIVE FREE [Suspect]
     Active Substance: KETOTIFEN FUMARATE
     Indication: Eye allergy
     Route: 047
     Dates: start: 20230225, end: 20230225

REACTIONS (4)
  - Instillation site erythema [Not Recovered/Not Resolved]
  - Product residue present [Not Recovered/Not Resolved]
  - Instillation site irritation [Not Recovered/Not Resolved]
  - Inappropriate schedule of product administration [Unknown]

NARRATIVE: CASE EVENT DATE: 20230201
